FAERS Safety Report 10082626 (Version 1)
Quarter: 2014Q2

REPORT INFORMATION
  Report Type: Spontaneous
  Country: JP (occurrence: JP)
  Receive Date: 20140416
  Receipt Date: 20140416
  Transmission Date: 20141212
  Serious: Yes (Other)
  Sender: FDA-Public Use
  Company Number: JP-MYLANLABS-2014S1008134

PATIENT
  Age: 15 Year
  Sex: Male

DRUGS (5)
  1. CARBOPLATIN [Suspect]
     Indication: GERM CELL CANCER
     Dosage: AUC 7 ON D1-3; PART OF HDCT CHEMOTHERAPY
     Route: 065
  2. ETOPOSIDE [Suspect]
     Indication: GERM CELL CANCER
     Dosage: 400 MG/M2 ON D1-3; PART OF HDCT CHEMOTHERAPY
     Route: 065
  3. ETOPOSIDE [Suspect]
     Indication: OFF LABEL USE
     Dosage: 400 MG/M2 ON D1-3; PART OF HDCT CHEMOTHERAPY
     Route: 065
  4. PACLITAXEL [Concomitant]
     Indication: GERM CELL CANCER
     Dosage: 200 MG/M2 D1; PART OF TI CHEMOTHERAPY
     Route: 065
  5. IFOSFAMIDE [Concomitant]
     Indication: GERM CELL CANCER
     Dosage: 2.0 G/M2 D2-4; PART OF TI CHEMOTHERAPY
     Route: 065

REACTIONS (2)
  - Renal impairment [Unknown]
  - Hearing impaired [Unknown]
